FAERS Safety Report 6927264-4 (Version None)
Quarter: 2010Q3

REPORT INFORMATION
  Report Type: 
  Country: None (occurrence: None)
  Receive Date: 20100817
  Receipt Date: 20100805
  Transmission Date: 20110219
  Serious: No
  Sender: FDA-Public Use
  Company Number: US-BIOGENIDEC-2010BI009116

PATIENT
  Sex: Male

DRUGS (1)
  1. TYSABRI [Suspect]
     Indication: MULTIPLE SCLEROSIS
     Route: 042
     Dates: start: 20090903, end: 20100202

REACTIONS (4)
  - CELLULITIS [None]
  - IMPAIRED HEALING [None]
  - INFECTED SKIN ULCER [None]
  - VENOUS INSUFFICIENCY [None]
